FAERS Safety Report 18109386 (Version 1)
Quarter: 2020Q3

REPORT INFORMATION
  Report Type: Spontaneous
  Country: US (occurrence: US)
  Receive Date: 20200804
  Receipt Date: 20200804
  Transmission Date: 20201103
  Serious: No
  Sender: FDA-Public Use
  Company Number: None

PATIENT
  Age: 51 Year
  Sex: Male
  Weight: 124.7 kg

DRUGS (6)
  1. REMDESIVIR. [Suspect]
     Active Substance: REMDESIVIR
     Indication: COVID-19
     Route: 042
     Dates: start: 20200802, end: 20200803
  2. VERSED [Concomitant]
     Active Substance: MIDAZOLAM HYDROCHLORIDE
     Dates: start: 20200802
  3. FENTANYL. [Concomitant]
     Active Substance: FENTANYL
     Dates: start: 20200803
  4. DIPRIVAN [Concomitant]
     Active Substance: PROPOFOL
     Dates: start: 20200802
  5. ZEMURON [Concomitant]
     Active Substance: ROCURONIUM BROMIDE
     Dates: start: 20200803, end: 20200803
  6. VASOSTRICT [Concomitant]
     Active Substance: VASOPRESSIN
     Dates: start: 20200803

REACTIONS (2)
  - Therapy cessation [None]
  - Continuous haemodiafiltration [None]

NARRATIVE: CASE EVENT DATE: 20200803
